FAERS Safety Report 24268900 (Version 1)
Quarter: 2024Q3

REPORT INFORMATION
  Report Type: Spontaneous
  Country: JP (occurrence: JP)
  Receive Date: 20240830
  Receipt Date: 20240830
  Transmission Date: 20241016
  Serious: Yes (Other)
  Sender: AMGEN
  Company Number: JP-AMGEN-JPNSP2024169982

PATIENT
  Sex: Female

DRUGS (3)
  1. EVENITY [Suspect]
     Active Substance: ROMOSOZUMAB-AQQG
     Indication: Product used for unknown indication
     Dosage: 210 MILLIGRAM
     Route: 058
     Dates: end: 2023
  2. EVENITY [Suspect]
     Active Substance: ROMOSOZUMAB-AQQG
     Dosage: 210 MILLIGRAM
     Route: 058
     Dates: start: 20240823
  3. MINODRONIC ACID [Suspect]
     Active Substance: MINODRONIC ACID
     Indication: Product used for unknown indication
     Dosage: 50 MILLIGRAM, QMO
     Route: 065

REACTIONS (2)
  - Neoplasm malignant [Unknown]
  - Compression fracture [Unknown]
